FAERS Safety Report 12569921 (Version 1)
Quarter: 2016Q3

REPORT INFORMATION
  Report Type: Spontaneous
  Country: US (occurrence: US)
  Receive Date: 20160719
  Receipt Date: 20160719
  Transmission Date: 20161109
  Serious: Yes (Hospitalization, Other)
  Sender: FDA-Public Use
  Company Number: US-GLAXOSMITHKLINE-US2016101952

PATIENT
  Age: 57 Year
  Sex: Female

DRUGS (11)
  1. METFORMIN [Concomitant]
     Active Substance: METFORMIN HYDROCHLORIDE
  2. ATORVASTATIN [Concomitant]
     Active Substance: ATORVASTATIN
  3. MELOXICAM. [Concomitant]
     Active Substance: MELOXICAM
  4. METOPROLOL. [Concomitant]
     Active Substance: METOPROLOL
  5. VENTOLIN HFA [Suspect]
     Active Substance: ALBUTEROL SULFATE
     Indication: ASTHMA
     Dosage: UNK, PRN
     Route: 055
  6. PANTOPRAZOLE [Concomitant]
     Active Substance: PANTOPRAZOLE SODIUM
  7. ADVAIR DISKUS [Suspect]
     Active Substance: FLUTICASONE PROPIONATE\SALMETEROL XINAFOATE
     Indication: ASTHMA
     Dosage: 1 PUFF(S), BID
     Route: 055
  8. FAMOTIDINE. [Concomitant]
     Active Substance: FAMOTIDINE
  9. CLOPIDOGREL [Concomitant]
     Active Substance: CLOPIDOGREL BISULFATE
  10. ASPIRIN. [Concomitant]
     Active Substance: ASPIRIN
  11. LOSARTAN. [Concomitant]
     Active Substance: LOSARTAN

REACTIONS (4)
  - Gallbladder operation [Recovering/Resolving]
  - Coronary arterial stent insertion [Recovered/Resolved]
  - Pancreatitis [Recovered/Resolved]
  - Gastric ulcer [Recovering/Resolving]

NARRATIVE: CASE EVENT DATE: 201506
